FAERS Safety Report 20672972 (Version 2)
Quarter: 2022Q2

REPORT INFORMATION
  Report Type: Report from Study
  Country: US (occurrence: US)
  Receive Date: 20220405
  Receipt Date: 20220502
  Transmission Date: 20220721
  Serious: Yes (Hospitalization)
  Sender: FDA-Public Use
  Company Number: US-EXELIXIS-CABO-22049897

PATIENT
  Sex: Male

DRUGS (15)
  1. CABOMETYX [Suspect]
     Active Substance: CABOZANTINIB S-MALATE
     Indication: Prostate cancer
     Dosage: 60 MG, QD
     Dates: start: 20220216
  2. CABOMETYX [Suspect]
     Active Substance: CABOZANTINIB S-MALATE
     Dosage: 20 MG, QD
     Dates: start: 20220408, end: 20220422
  3. TECENTRIQ [Concomitant]
     Active Substance: ATEZOLIZUMAB
     Indication: Prostate cancer
     Dosage: UNK, Q3WEEKS
  4. PREDNISONE [Concomitant]
     Active Substance: PREDNISONE
     Dosage: UNK
  5. ZOMETA [Concomitant]
     Active Substance: ZOLEDRONIC ACID
     Dosage: UNK
  6. LUPRON [Concomitant]
     Active Substance: LEUPROLIDE ACETATE
     Dosage: UNK
  7. OLANZAPINE [Concomitant]
     Active Substance: OLANZAPINE
     Dosage: UNK
  8. OXYCODONE [Concomitant]
     Active Substance: OXYCODONE
     Dosage: UNK
  9. PANTOPRAZOLE [Concomitant]
     Active Substance: PANTOPRAZOLE
     Dosage: UNK
  10. CALCIUM\CHOLECALCIFEROL [Concomitant]
     Active Substance: CALCIUM\CHOLECALCIFEROL
     Dosage: UNK
  11. VITAMINS [Concomitant]
     Active Substance: VITAMINS
  12. TAMSULOSIN [Concomitant]
     Active Substance: TAMSULOSIN
  13. ELIQUIS [Concomitant]
     Active Substance: APIXABAN
  14. LOPERAMIDE [Concomitant]
     Active Substance: LOPERAMIDE
  15. DEXAMETHASONE [Concomitant]
     Active Substance: DEXAMETHASONE

REACTIONS (12)
  - Pulmonary infarction [Not Recovered/Not Resolved]
  - Pulmonary embolism [Recovering/Resolving]
  - Confusional state [Recovered/Resolved]
  - Fatigue [Recovered/Resolved]
  - Decreased appetite [Recovered/Resolved]
  - Nausea [Recovered/Resolved]
  - Taste disorder [Recovered/Resolved]
  - Diarrhoea [Recovered/Resolved]
  - Asthenia [Recovered/Resolved]
  - Drug ineffective [Unknown]
  - Malignant neoplasm progression [Unknown]
  - Off label use [Unknown]
